FAERS Safety Report 8233968-6 (Version None)
Quarter: 2012Q1

REPORT INFORMATION
  Report Type: 
  Country: None (occurrence: None)
  Receive Date: 20120322
  Receipt Date: 20120309
  Transmission Date: 20120608
  Serious: Yes (Hospitalization, Other)
  Sender: FDA-Public Use
  Company Number: 2012SP007256

PATIENT
  Sex: Male

DRUGS (4)
  1. PEGASYS [Suspect]
     Indication: HEPATITIS C
     Dates: start: 20120203
  2. RIBAVIRIN [Suspect]
     Indication: HEPATITIS C
     Dates: start: 20120203
  3. RIBAVIRIN [Suspect]
     Indication: HEPATITIS C
     Dates: start: 20010202, end: 20020404
  4. VICTRELIS [Suspect]
     Indication: HEPATITIS C
     Dates: start: 20120302

REACTIONS (11)
  - FEELING COLD [None]
  - POST-TRAUMATIC STRESS DISORDER [None]
  - DEPRESSION [None]
  - OPTIC NERVE OPERATION [None]
  - BLOOD POTASSIUM DECREASED [None]
  - EYE HAEMORRHAGE [None]
  - INFLUENZA [None]
  - HEPATIC CIRRHOSIS [None]
  - CATARACT [None]
  - STRESS [None]
  - PAIN [None]
